FAERS Safety Report 6542611-3 (Version None)
Quarter: 2010Q1

REPORT INFORMATION
  Report Type: 
  Country: None (occurrence: None)
  Receive Date: 20100114
  Receipt Date: 20100105
  Transmission Date: 20100710
  Serious: Yes (Hospitalization)
  Sender: FDA-Public Use
  Company Number: 2009-197231-NL

PATIENT
  Age: 22 Year
  Sex: Female
  Weight: 88.4514 kg

DRUGS (4)
  1. NUVARING [Suspect]
     Indication: CONTRACEPTION
     Dosage: 1 DF
     Dates: start: 20080401, end: 20080601
  2. LECITHIN [Concomitant]
  3. ACYCLOVIR [Concomitant]
  4. CIPROFLOXACIN [Concomitant]

REACTIONS (7)
  - ABDOMINAL PAIN [None]
  - ACTIVATED PARTIAL THROMBOPLASTIN TIME PROLONGED [None]
  - DEPRESSION [None]
  - EYE PAIN [None]
  - NAUSEA [None]
  - TRANSVERSE SINUS THROMBOSIS [None]
  - VOMITING [None]
